FAERS Safety Report 9611579 (Version 3)
Quarter: 2013Q4

REPORT INFORMATION
  Report Type: Report from Study
  Country: BE (occurrence: BE)
  Receive Date: 20131010
  Receipt Date: 20131209
  Transmission Date: 20140711
  Serious: Yes (Hospitalization)
  Sender: FDA-Public Use
  Company Number: PHHO2013BE013076

PATIENT
  Sex: 0

DRUGS (4)
  1. ACZ885 [Suspect]
     Indication: JUVENILE IDIOPATHIC ARTHRITIS
     Dosage: 4 MG/KG, UNK
     Route: 042
     Dates: start: 20121226
  2. METHOTREXATE [Concomitant]
  3. ENALAPRIL [Concomitant]
  4. CORTICOSTEROIDS [Concomitant]

REACTIONS (1)
  - Scarlet fever [Recovered/Resolved]
